FAERS Safety Report 8602136-8 (Version None)
Quarter: 2012Q3

REPORT INFORMATION
  Report Type: 
  Country: None (occurrence: None)
  Receive Date: 20120817
  Receipt Date: 20120809
  Transmission Date: 20120928
  Serious: Yes (Hospitalization)
  Sender: FDA-Public Use
  Company Number: IN-B.I. PHARMACEUTICALS,INC./RIDGEFIELD-2012-RU-00371BP

PATIENT
  Sex: Female
  Weight: 58 kg

DRUGS (11)
  1. NAPHAZOLINE HCL [Suspect]
     Indication: ENTERITIS INFECTIOUS
     Dosage: 1000 MG
     Route: 048
     Dates: start: 20120809
  2. INJ.EMESET [Suspect]
     Indication: NAUSEA
     Dosage: 4 MG
     Route: 042
     Dates: start: 20120808, end: 20120809
  3. PANTAPROZOLE SODIUM [Suspect]
     Indication: HYPERCHLORHYDRIA
     Dosage: 40 MG
     Route: 042
     Dates: start: 20120808, end: 20120809
  4. TABLET. OFLOXACIN [Suspect]
     Indication: ENTERITIS INFECTIOUS
     Dosage: 400 MG
     Route: 048
     Dates: start: 20120809
  5. OFLOXACIN [Suspect]
     Indication: ENTERITIS INFECTIOUS
     Dosage: 400 MG
     Route: 042
     Dates: start: 20120808, end: 20120809
  6. TABLET.EMESET [Suspect]
     Indication: NAUSEA
     Dosage: 8 MG
     Route: 048
     Dates: start: 20120809
  7. BI 1356 [Suspect]
     Indication: TYPE 2 DIABETES MELLITUS
     Dosage: 5 MG
     Dates: start: 20120302
  8. METRONIDAZOLE [Suspect]
     Indication: DIARRHOEA
     Dosage: 500 MG
     Route: 042
     Dates: start: 20120808, end: 20120809
  9. TABLET.RAZEP [Suspect]
     Indication: HYPERCHLORHYDRIA
     Dosage: 40 MG
     Route: 048
     Dates: start: 20120809
  10. TABLET.VSL 3 [Suspect]
     Indication: MEDICAL DIET
     Dosage: UNIT: -
     Route: 048
     Dates: start: 20120809
  11. CAPSULE.ESAMINO [Suspect]
     Indication: VITAMIN SUPPLEMENTATION
     Dosage: UNIT: -
     Route: 048
     Dates: start: 20120809

REACTIONS (1)
  - GASTROENTERITIS [None]
